FAERS Safety Report 13628236 (Version 1)
Quarter: 2017Q2

REPORT INFORMATION
  Report Type: Report from Study
  Country: IT (occurrence: IT)
  Receive Date: 20170608
  Receipt Date: 20170608
  Transmission Date: 20170830
  Serious: Yes (Other)
  Sender: FDA-Public Use
  Company Number: IT-PFIZER INC-2017238457

PATIENT
  Age: 7 Year
  Sex: Female

DRUGS (4)
  1. VINCRISTINE SULFATE. [Suspect]
     Active Substance: VINCRISTINE SULFATE
     Indication: EWING^S SARCOMA
     Dosage: 1.5 MG/M2, IV (MAXIMUM, 2.0 MG) ON DAY 8
     Route: 042
  2. ACTINOMYCIN D [Suspect]
     Active Substance: DACTINOMYCIN
     Indication: EWING^S SARCOMA
     Dosage: 1.5 MG/M2 IV (MAXIMUM, 2.0 MG) ON DAY 8
     Route: 042
  3. DOXORUBICIN HCL [Suspect]
     Active Substance: DOXORUBICIN HYDROCHLORIDE
     Indication: EWING^S SARCOMA
     Dosage: 35 MG/M2 IV ON DAY 8
     Route: 042
  4. CYCLOPHOSPHAMIDE. [Suspect]
     Active Substance: CYCLOPHOSPHAMIDE
     Indication: EWING^S SARCOMA
     Dosage: 150 MG/M2 IM OR ORALLY ON DAYS 1-7

REACTIONS (2)
  - Second primary malignancy [Recovered/Resolved]
  - Peripheral nerve sheath tumour malignant [Recovered/Resolved]
